APPROVED DRUG PRODUCT: POTASSIUM CHLORIDE 0.037% IN SODIUM CHLORIDE 0.9% IN PLASTIC CONTAINER
Active Ingredient: POTASSIUM CHLORIDE; SODIUM CHLORIDE
Strength: 37MG/100ML;900MG/100ML
Dosage Form/Route: INJECTABLE;INJECTION
Application: N019708 | Product #001
Applicant: B BRAUN MEDICAL INC
Approved: Sep 29, 1989 | RLD: No | RS: No | Type: DISCN